FAERS Safety Report 7026960-0 (Version None)
Quarter: 2010Q4

REPORT INFORMATION
  Report Type: 
  Country: None (occurrence: None)
  Receive Date: 20101004
  Receipt Date: 20100922
  Transmission Date: 20110411
  Serious: Yes (Other)
  Sender: FDA-Public Use
  Company Number: US-SANOFI-AVENTIS-2010SA057052

PATIENT
  Age: 68 Year
  Sex: Female
  Weight: 63.3 kg

DRUGS (12)
  1. OXALIPLATIN [Suspect]
     Indication: COLON CANCER
     Route: 042
     Dates: start: 20100721, end: 20100721
  2. OXALIPLATIN [Suspect]
     Route: 042
     Dates: start: 20100901, end: 20100901
  3. FLUOROURACIL [Suspect]
     Indication: COLON CANCER
     Route: 040
     Dates: start: 20100721, end: 20100721
  4. FLUOROURACIL [Suspect]
     Route: 041
     Dates: start: 20100721, end: 20100721
  5. FLUOROURACIL [Suspect]
     Route: 040
     Dates: start: 20100901, end: 20100901
  6. FLUOROURACIL [Suspect]
     Route: 041
     Dates: start: 20100901, end: 20100901
  7. LEUCOVORIN CALCIUM [Suspect]
     Indication: COLON CANCER
     Route: 041
     Dates: start: 20100721, end: 20100721
  8. LEUCOVORIN CALCIUM [Suspect]
     Route: 041
     Dates: start: 20100901, end: 20100901
  9. LORAZEPAM [Concomitant]
  10. OTHER AGENTS FOR LOCAL ORAL TREATMENT [Concomitant]
  11. OMEPRAZOLE [Concomitant]
  12. ONDANSETRON [Concomitant]

REACTIONS (1)
  - TINNITUS [None]
